FAERS Safety Report 17082440 (Version 1)
Quarter: 2019Q4

REPORT INFORMATION
  Report Type: Spontaneous
  Country: LT (occurrence: LT)
  Receive Date: 20191127
  Receipt Date: 20191127
  Transmission Date: 20200122
  Serious: Yes (Hospitalization)
  Sender: FDA-Public Use
  Company Number: LT-ASTRAZENECA-2019SF65656

PATIENT
  Age: 36 Year
  Sex: Female

DRUGS (3)
  1. QUETIAPINE. [Suspect]
     Active Substance: QUETIAPINE
     Indication: PRODUCT ADMINISTRATION ERROR
     Dosage: UNKNOWN
     Route: 048
     Dates: start: 20191029, end: 20191028
  2. ZIPRASIDONE. [Suspect]
     Active Substance: ZIPRASIDONE
     Indication: PRODUCT ADMINISTRATION ERROR
     Dosage: UNKNOWN
     Route: 048
     Dates: start: 20191029, end: 20191028
  3. OLANZAPINE. [Suspect]
     Active Substance: OLANZAPINE
     Indication: PRODUCT ADMINISTRATION ERROR
     Dosage: UNKNOWN
     Route: 048
     Dates: start: 20191029, end: 20191028

REACTIONS (3)
  - Urinary retention [Recovered/Resolved]
  - Intentional overdose [Recovered/Resolved]
  - Somnolence [Recovered/Resolved]

NARRATIVE: CASE EVENT DATE: 20191029
